FAERS Safety Report 10375119 (Version 1)
Quarter: 2014Q3

REPORT INFORMATION
  Report Type: Spontaneous
  Country: US (occurrence: US)
  Receive Date: 20140811
  Receipt Date: 20140811
  Transmission Date: 20150326
  Serious: Yes (Hospitalization)
  Sender: FDA-Public Use
  Company Number: US-PFIZER INC-2014219464

PATIENT
  Age: 50 Year
  Sex: Male
  Weight: 58.96 kg

DRUGS (1)
  1. DILANTIN [Suspect]
     Active Substance: PHENYTOIN
     Indication: CONVULSION
     Dosage: UNK

REACTIONS (4)
  - Drug level decreased [Unknown]
  - Impaired driving ability [Unknown]
  - Drug ineffective [Unknown]
  - Malaise [Unknown]

NARRATIVE: CASE EVENT DATE: 2014
